FAERS Safety Report 6929527-5 (Version None)
Quarter: 2010Q3

REPORT INFORMATION
  Report Type: 
  Country: None (occurrence: None)
  Receive Date: 20100818
  Receipt Date: 20100811
  Transmission Date: 20110219
  Serious: Yes (Life-Threatening, Hospitalization, Other)
  Sender: FDA-Public Use
  Company Number: DE-BAYER-200918127GPV

PATIENT
  Age: 39 Year
  Sex: Male

DRUGS (3)
  1. MABCAMPATH [Suspect]
     Indication: MULTIPLE SCLEROSIS
     Route: 042
     Dates: start: 20090331, end: 20090401
  2. MABCAMPATH [Suspect]
     Route: 042
     Dates: start: 20090415, end: 20090417
  3. OMEPRAZOLE [Concomitant]

REACTIONS (1)
  - ATRIAL FIBRILLATION [None]
